FAERS Safety Report 5481695-0 (Version None)
Quarter: 2007Q4

REPORT INFORMATION
  Report Type: 
  Country: None (occurrence: None)
  Receive Date: 20071010
  Receipt Date: 20070926
  Transmission Date: 20080405
  Serious: Yes (Other)
  Sender: FDA-Public Use
  Company Number: US-ASTRAZENECA-2007UW22573

PATIENT
  Sex: Female

DRUGS (2)
  1. FASLODEX [Suspect]
     Indication: BREAST CANCER
     Route: 030
     Dates: start: 20040101
  2. FASLODEX [Suspect]
     Indication: OESTROGEN RECEPTOR ASSAY POSITIVE
     Route: 030
     Dates: start: 20040101

REACTIONS (2)
  - ARTHROPATHY [None]
  - BONE PAIN [None]
